FAERS Safety Report 21794628 (Version 2)
Quarter: 2023Q1

REPORT INFORMATION
  Report Type: Report from Study
  Country: US (occurrence: US)
  Receive Date: 20221229
  Receipt Date: 20230308
  Transmission Date: 20230418
  Serious: Yes (Hospitalization, Other)
  Sender: FDA-Public Use
  Company Number: US-ABBVIE-4251557

PATIENT
  Age: 76 Year
  Sex: Female

DRUGS (2)
  1. HUMIRA [Suspect]
     Active Substance: ADALIMUMAB
     Indication: Uveitis
     Route: 058
     Dates: start: 20201209
  2. HUMIRA [Suspect]
     Active Substance: ADALIMUMAB
     Indication: Psoriatic arthropathy

REACTIONS (6)
  - Affective disorder [Unknown]
  - Pain in extremity [Recovering/Resolving]
  - Cardiac failure congestive [Unknown]
  - Emotional distress [Not Recovered/Not Resolved]
  - Atrial fibrillation [Unknown]
  - Illness [Unknown]

NARRATIVE: CASE EVENT DATE: 20221125
